FAERS Safety Report 4638666-3 (Version None)
Quarter: 2005Q2

REPORT INFORMATION
  Report Type: 
  Country: None (occurrence: None)
  Receive Date: 20050325
  Receipt Date: 20050119
  Transmission Date: 20051028
  Serious: No
  Sender: FDA-Public Use
  Company Number: USA041184415

PATIENT
  Age: 60 Year
  Sex: Female
  Weight: 52 kg

DRUGS (3)
  1. FORTEO [Suspect]
     Indication: OSTEOPOROSIS
     Dosage: 20 UG/1 DAY
     Dates: start: 20040907
  2. EVISTA [Suspect]
     Indication: OSTEOPOROSIS
     Dosage: 60 MG
  3. FOSAMAX [Concomitant]

REACTIONS (1)
  - BLOOD CALCIUM INCREASED [None]
